FAERS Safety Report 21976445 (Version 1)
Quarter: 2023Q1

REPORT INFORMATION
  Report Type: Report from Study
  Country: US (occurrence: US)
  Receive Date: 20230210
  Receipt Date: 20230210
  Transmission Date: 20230417
  Serious: Yes (Other)
  Sender: FDA-Public Use
  Company Number: US-002147023-NVSC2023US028106

PATIENT
  Sex: Female

DRUGS (2)
  1. AFINITOR [Suspect]
     Active Substance: EVEROLIMUS
     Indication: Product used for unknown indication
     Dosage: 10 MG
     Route: 065
  2. AFINITOR [Suspect]
     Active Substance: EVEROLIMUS
     Dosage: 5 MG
     Route: 065
     Dates: start: 202212

REACTIONS (7)
  - Neuropathy peripheral [Unknown]
  - Tongue pigmentation [Unknown]
  - Skin disorder [Unknown]
  - Tenderness [Unknown]
  - Oral pain [Unknown]
  - Pain [Unknown]
  - Rash [Unknown]
